FAERS Safety Report 6904254-9 (Version None)
Quarter: 2010Q3

REPORT INFORMATION
  Report Type: 
  Country: None (occurrence: None)
  Receive Date: 20100804
  Receipt Date: 20090403
  Transmission Date: 20110219
  Serious: No
  Sender: FDA-Public Use
  Company Number: US-PFIZER INC-2009171370

PATIENT
  Sex: Male
  Weight: 145 kg

DRUGS (3)
  1. LYRICA [Suspect]
     Indication: DIABETIC NEUROPATHY
     Dosage: 50 MG, 1X/DAY
     Dates: start: 20090205
  2. NEURONTIN [Suspect]
     Dosage: UNK
     Dates: start: 20080101
  3. ALL OTHER THERAPEUTIC PRODUCTS [Concomitant]
     Dosage: UNK

REACTIONS (4)
  - ARTHROPATHY [None]
  - DIZZINESS [None]
  - DYSSTASIA [None]
  - MUSCLE SPASMS [None]
